FAERS Safety Report 15309533 (Version 1)
Quarter: 2018Q4

REPORT INFORMATION
  Report Type: Spontaneous
  Country: DE (occurrence: DE)
  Receive Date: 20180823
  Receipt Date: 20180823
  Transmission Date: 20190204
  Serious: Yes (Hospitalization, Other)
  Sender: FDA-Public Use
  Company Number: DE-TEVA-2018-DE-946613

PATIENT
  Age: 72 Year
  Sex: Male

DRUGS (3)
  1. DIPIPERON [Suspect]
     Active Substance: PIPAMPERONE
     Indication: PRODUCT USED FOR UNKNOWN INDICATION
     Dosage: 20 MG  AT 10 PM AND ANOTHER 40 MG AT MIDNIGHT
     Route: 048
     Dates: start: 20171121
  2. AMITRIPTYLINE [Suspect]
     Active Substance: AMITRIPTYLINE
     Indication: PRODUCT USED FOR UNKNOWN INDICATION
     Dosage: SINCE MONTH, ONGOING
     Route: 048
  3. DOMINAL (PROTHIPENDYL HYDROCHLORIDE) [Suspect]
     Active Substance: PROTHIPENDYL HYDROCHLORIDE
     Indication: PRODUCT USED FOR UNKNOWN INDICATION
     Route: 048

REACTIONS (2)
  - Fall [Unknown]
  - Facial bones fracture [Unknown]

NARRATIVE: CASE EVENT DATE: 20171121
